FAERS Safety Report 7701890-7 (Version None)
Quarter: 2011Q3

REPORT INFORMATION
  Report Type: 
  Country: None (occurrence: None)
  Receive Date: 20110822
  Receipt Date: 20110801
  Transmission Date: 20111222
  Serious: Yes (Other)
  Sender: FDA-Public Use
  Company Number: PHHY2011BR70634

PATIENT
  Sex: Female

DRUGS (10)
  1. BUFFERIN [Suspect]
     Indication: BLOOD DISORDER
     Dosage: 1 DF, UNK
     Route: 048
     Dates: end: 20110731
  2. NISULID [Concomitant]
     Indication: PAIN
  3. AMARYL [Concomitant]
     Indication: DIABETES MELLITUS
     Dosage: 2 DF, QD
     Route: 048
  4. CIPROFIBRATE [Concomitant]
     Dosage: 1 DF/DAY
     Route: 048
  5. VYTORIN [Concomitant]
     Indication: BLOOD CHOLESTEROL
     Dosage: 1 DF/DAY
     Route: 048
  6. PANTOPRAZOLE [Concomitant]
     Dosage: 1 DF/DAY
     Route: 048
  7. LOSARTAN POTASSIUM [Concomitant]
     Indication: HYPERTENSION
     Dosage: 1 DF/DAY
     Route: 048
  8. NEBIVOLOL HCL [Concomitant]
     Indication: HYPERTENSION
     Dosage: 1 DF/DAY
     Route: 048
  9. METFFORMIN HYDROCHLORIDE [Concomitant]
     Dosage: 1 DF, UNK
     Route: 048
     Dates: start: 20110701
  10. CLOPIDOGREL BISULFATE [Concomitant]
     Dosage: 1 DF/DAY

REACTIONS (4)
  - HYPERTENSION [None]
  - BLOOD CHOLESTEROL ABNORMAL [None]
  - BLOOD GLUCOSE INCREASED [None]
  - DIABETES MELLITUS [None]
